FAERS Safety Report 18953571 (Version 1)
Quarter: 2021Q1

REPORT INFORMATION
  Report Type: Spontaneous
  Country: IT (occurrence: IT)
  Receive Date: 20210301
  Receipt Date: 20210301
  Transmission Date: 20210420
  Serious: Yes (Life-Threatening, Hospitalization)
  Sender: FDA-Public Use
  Company Number: IT-MYLANLABS-2021M1011953

PATIENT
  Age: 18 Year
  Sex: Female

DRUGS (8)
  1. HYDROCORTISONE. [Suspect]
     Active Substance: HYDROCORTISONE
     Indication: ACUTE RESPIRATORY FAILURE
     Dosage: 500 MILLIGRAM (INTRAVENOUS BOLUS)
     Route: 042
  2. SALINE                             /00075401/ [Concomitant]
     Active Substance: SODIUM CHLORIDE
     Indication: CHEMOTHERAPY SIDE EFFECT PROPHYLAXIS
     Dosage: INTRAVENOUS (NOT SPECIFIED)
     Route: 042
  3. PYRIDOSTIGMINE [Concomitant]
     Active Substance: PYRIDOSTIGMINE
     Indication: MYASTHENIA GRAVIS
     Dosage: EVERY 3 HOURS DURING THE DAYTIME
     Route: 048
  4. PYRIDOSTIGMINE [Concomitant]
     Active Substance: PYRIDOSTIGMINE
     Dosage: SUSTAINED?RELEASE BEFORE SLEEPING
     Route: 048
  5. PREDNISONE. [Concomitant]
     Active Substance: PREDNISONE
     Indication: MYASTHENIA GRAVIS
     Dosage: 25 MILLIGRAM, QD
     Route: 048
  6. CHLORPHENAMINE [Suspect]
     Active Substance: CHLORPHENIRAMINE MALEATE
     Indication: ACUTE RESPIRATORY FAILURE
     Dosage: INTRAVENOUS BOLUS
     Route: 042
  7. DEXAMETHASONE. [Concomitant]
     Active Substance: DEXAMETHASONE
     Indication: CHEMOTHERAPY SIDE EFFECT PROPHYLAXIS
     Dosage: INTRAVENOUS (NOT SPECIFIED)
     Route: 042
  8. ONDANSETRON [Concomitant]
     Active Substance: ONDANSETRON
     Indication: CHEMOTHERAPY SIDE EFFECT PROPHYLAXIS
     Dosage: 8 MILLIGRAM; INTRAVENOUS (NOT SPECIFIED)
     Route: 042

REACTIONS (2)
  - Respiratory acidosis [Recovered/Resolved]
  - Drug ineffective [Unknown]
